FAERS Safety Report 25079706 (Version 1)
Quarter: 2025Q1

REPORT INFORMATION
  Report Type: Spontaneous
  Country: CN (occurrence: CN)
  Receive Date: 20250314
  Receipt Date: 20250314
  Transmission Date: 20250409
  Serious: Yes (Disabling)
  Sender: WAYLIS THERAPEUTICS
  Company Number: CN-WAYLIS-2025-CN-000064

PATIENT
  Age: 77 Year
  Sex: Female

DRUGS (7)
  1. RABEPRAZOLE SODIUM [Suspect]
     Active Substance: RABEPRAZOLE SODIUM
     Indication: Gastrointestinal disorder prophylaxis
     Route: 048
     Dates: start: 20250217, end: 20250306
  2. BUTYLPHTHALIDE [Concomitant]
     Active Substance: BUTYLPHTHALIDE
     Route: 045
     Dates: start: 20250217, end: 20250221
  3. ATORVASTATIN CALCIUM [Suspect]
     Active Substance: ATORVASTATIN CALCIUM
     Route: 045
     Dates: start: 20250217, end: 20250305
  4. AMBROXOL HYDROCHLORIDE [Concomitant]
     Active Substance: AMBROXOL HYDROCHLORIDE
     Route: 045
     Dates: start: 20250217, end: 20250221
  5. CLOPIDOGREL BISULFATE [Concomitant]
     Active Substance: CLOPIDOGREL BISULFATE
     Route: 045
     Dates: start: 20250217, end: 20250221
  6. GINKGO [Concomitant]
     Active Substance: GINKGO
     Route: 045
     Dates: start: 20250217, end: 20250221
  7. ASPIRIN SODIUM [Concomitant]
     Active Substance: ASPIRIN SODIUM
     Route: 045
     Dates: start: 20250217, end: 20250221

REACTIONS (1)
  - Hepatic function abnormal [Recovered/Resolved with Sequelae]

NARRATIVE: CASE EVENT DATE: 20250221
